FAERS Safety Report 5491784-2 (Version None)
Quarter: 2007Q4

REPORT INFORMATION
  Report Type: 
  Country: None (occurrence: None)
  Receive Date: 20071018
  Receipt Date: 20071005
  Transmission Date: 20080405
  Serious: Yes (Death, Life-Threatening, Hospitalization)
  Sender: FDA-Public Use
  Company Number: PHO-2007-046

PATIENT
  Age: 59 Year
  Sex: Male

DRUGS (12)
  1. PHOTOFRIN [Suspect]
     Indication: PHOTODYNAMIC THERAPY
     Dosage: 142.2 MG, 1 DOSE, IV
     Route: 042
     Dates: start: 20071009
  2. VANCOMYCIN [Concomitant]
  3. BUDIVACAINE [Concomitant]
  4. CEFEPIME [Concomitant]
  5. FLAGYL [Concomitant]
  6. ZANTAC [Concomitant]
  7. LOPRESOR (METOPROLOL) [Concomitant]
  8. LEVOTHYROXINE SODIUM [Concomitant]
  9. ZOFRAN [Concomitant]
  10. PROPOFOL [Concomitant]
  11. HEPARIN [Concomitant]
  12. NEOSYNEPHRINE [Concomitant]

REACTIONS (19)
  - ASPARTATE AMINOTRANSFERASE INCREASED [None]
  - BLOOD ALKALINE PHOSPHATASE INCREASED [None]
  - BLOOD BILIRUBIN INCREASED [None]
  - FLUID OVERLOAD [None]
  - GALLBLADDER ENLARGEMENT [None]
  - GENERAL PHYSICAL HEALTH DETERIORATION [None]
  - HAEMATURIA [None]
  - HAEMODIALYSIS [None]
  - HAEMOGLOBIN DECREASED [None]
  - HYPOVOLAEMIA [None]
  - JUGULAR VEIN THROMBOSIS [None]
  - METABOLIC ACIDOSIS [None]
  - PNEUMONECTOMY [None]
  - PNEUMONIA ASPIRATION [None]
  - RESPIRATORY DISTRESS [None]
  - TRANSAMINASES INCREASED [None]
  - ULCER [None]
  - VASCULITIS [None]
  - VENTRICULAR HYPERTROPHY [None]
